FAERS Safety Report 11783513 (Version 1)
Quarter: 2015Q4

REPORT INFORMATION
  Report Type: Spontaneous
  Country: DE (occurrence: DE)
  Receive Date: 20151127
  Receipt Date: 20151127
  Transmission Date: 20160305
  Serious: Yes (Hospitalization)
  Sender: FDA-Public Use
  Company Number: DE-LABORATOIRE HRA PHARMA-1044705

PATIENT
  Age: 42 Year
  Sex: Female
  Weight: 67.6 kg

DRUGS (1)
  1. ELLA [Suspect]
     Active Substance: ULIPRISTAL ACETATE
     Route: 047
     Dates: start: 20140303, end: 20140303

REACTIONS (2)
  - Arterial injury [Recovered/Resolved]
  - Unintended pregnancy [None]

NARRATIVE: CASE EVENT DATE: 20141120
